FAERS Safety Report 8245374-9 (Version None)
Quarter: 2012Q1

REPORT INFORMATION
  Report Type: 
  Country: None (occurrence: None)
  Receive Date: 20120329
  Receipt Date: 20120322
  Transmission Date: 20120608
  Serious: Yes (Other)
  Sender: FDA-Public Use
  Company Number: IT-GILEAD-2012-0052626

PATIENT
  Age: 32 Year
  Sex: Female

DRUGS (2)
  1. VIREAD [Suspect]
     Indication: HEPATITIS B
     Dosage: UNK
     Dates: start: 20110628
  2. ETRAVIRINE [Concomitant]
     Indication: HEPATITIS B
     Dosage: UNK
     Dates: start: 20110608

REACTIONS (1)
  - STILLBIRTH [None]
